FAERS Safety Report 13826195 (Version 2)
Quarter: 2018Q3

REPORT INFORMATION
  Report Type: Spontaneous
  Country: US (occurrence: US)
  Receive Date: 20170802
  Receipt Date: 20180921
  Transmission Date: 20181010
  Serious: Yes (Hospitalization)
  Sender: FDA-Public Use
  Company Number: US-IGSA-GTI005191

PATIENT
  Age: 47 Year
  Sex: Female
  Weight: 63 kg

DRUGS (11)
  1. KENALOG [Concomitant]
     Active Substance: TRIAMCINOLONE ACETONIDE
     Indication: SKIN LESION
     Dosage: UNK UNK, BID
     Dates: start: 201702
  2. TRAZODONE [Concomitant]
     Active Substance: TRAZODONE HYDROCHLORIDE
     Dosage: 200 MG, QD
  3. GAMUNEX?C [Suspect]
     Active Substance: HUMAN IMMUNOGLOBULIN G
     Indication: LICHEN PLANUS
     Dosage: 26 G, TOTAL
     Route: 042
     Dates: start: 20170202, end: 20170202
  4. TACROLIMUS. [Concomitant]
     Active Substance: TACROLIMUS
     Indication: ADVERSE DRUG REACTION
     Dosage: .5 MG, BID
     Dates: start: 201702
  5. GAMUNEX?C [Suspect]
     Active Substance: HUMAN IMMUNOGLOBULIN G
     Dosage: 26 G, TOTAL
     Route: 042
     Dates: start: 20170201, end: 20170201
  6. HYDROXYCHLOROQUINE [Concomitant]
     Active Substance: HYDROXYCHLOROQUINE
     Indication: ADVERSE DRUG REACTION
     Dosage: UNK UNK, BID
     Dates: start: 201702
  7. NORCO [Concomitant]
     Active Substance: ACETAMINOPHEN\HYDROCODONE BITARTRATE
     Dosage: UNK UNK, PRN
  8. LIDOCAINE                          /00033402/ [Concomitant]
     Active Substance: LIDOCAINE
     Indication: ADVERSE DRUG REACTION
     Dosage: 10 ML, TID
     Route: 048
     Dates: start: 201702
  9. ONDANSETRON [Concomitant]
     Active Substance: ONDANSETRON
     Indication: NAUSEA
     Dosage: 4 MG, UNK
  10. PROPRANOLOL [Concomitant]
     Active Substance: PROPRANOLOL HYDROCHLORIDE
     Dosage: 60 MG, QD
  11. MULTIVITAMIN                       /00097801/ [Concomitant]
     Active Substance: VITAMINS
     Dosage: UNK

REACTIONS (7)
  - Pyrexia [Recovering/Resolving]
  - Eye irritation [Unknown]
  - Eye discharge [Unknown]
  - Malaise [Recovering/Resolving]
  - Vision blurred [Unknown]
  - Stevens-Johnson syndrome [Recovering/Resolving]
  - Hyperhidrosis [Recovering/Resolving]

NARRATIVE: CASE EVENT DATE: 201702
